FAERS Safety Report 9083657 (Version 3)
Quarter: 2013Q1

REPORT INFORMATION
  Report Type: Spontaneous
  Country: JP (occurrence: JP)
  Receive Date: 20130130
  Receipt Date: 20130328
  Transmission Date: 20140127
  Serious: Yes (Life-Threatening, Hospitalization)
  Sender: FDA-Public Use
  Company Number: JP-EISAI INC-E7389-03486-SPO-JP

PATIENT
  Age: 46 Year
  Sex: Female
  Weight: 76 kg

DRUGS (8)
  1. HALAVEN [Suspect]
     Indication: BREAST CANCER RECURRENT
     Route: 041
     Dates: start: 20121112, end: 20121119
  2. PREGABALIN [Concomitant]
     Dosage: UNKNOWN
     Route: 048
  3. LOXOPROFEN [Concomitant]
     Dosage: UNKNOWN
     Route: 048
  4. DECADRON [Concomitant]
     Dosage: UNKNOWN
     Route: 048
  5. FAMOTIDINE [Concomitant]
     Dosage: UNKNOWN
     Route: 048
  6. CYMBALTA [Concomitant]
     Dosage: UNKNOWN
     Route: 048
  7. LASIX [Concomitant]
     Dosage: UNKNOWN
     Route: 048
  8. DUROTEP [Concomitant]
     Dosage: UNKNOWN
     Route: 048

REACTIONS (3)
  - Shock [Recovered/Resolved]
  - Disseminated intravascular coagulation [Recovered/Resolved]
  - Febrile neutropenia [Recovered/Resolved]
